FAERS Safety Report 7317976-5 (Version None)
Quarter: 2011Q1

REPORT INFORMATION
  Report Type: 
  Country: None (occurrence: None)
  Receive Date: 20110227
  Receipt Date: 20110218
  Transmission Date: 20110831
  Serious: Yes (Hospitalization)
  Sender: FDA-Public Use
  Company Number: US-AMGEN-USASP2011009749

PATIENT
  Age: 43 Year
  Sex: Female
  Weight: 50 kg

DRUGS (10)
  1. VECTIBIX [Suspect]
     Indication: COLORECTAL CANCER
     Dosage: 312 MG, Q2WK
     Route: 042
  2. ZOFRAN [Concomitant]
     Dosage: 8 MG, UNK
  3. LORAZEPAM [Concomitant]
     Dosage: 1 MG, Q6H
  4. AMBIEN [Concomitant]
     Dosage: 10 MG, QHS
  5. COMPAZINE [Concomitant]
     Dosage: 10 MG, Q6H
     Route: 048
  6. OMEPRAZOLE [Concomitant]
  7. SENNA                              /00142201/ [Concomitant]
  8. OXYGEN [Concomitant]
  9. DECITABINE [Suspect]
     Indication: COLORECTAL CANCER
     Dosage: 69 MG, Q2WK
     Route: 042
  10. MINOCYCLINE HCL [Concomitant]
     Dosage: 100 MG, QD
     Route: 048

REACTIONS (3)
  - FEBRILE NEUTROPENIA [None]
  - DYSPNOEA [None]
  - FATIGUE [None]
